FAERS Safety Report 5507795-4 (Version None)
Quarter: 2007Q4

REPORT INFORMATION
  Report Type: 
  Country: None (occurrence: None)
  Receive Date: 20071106
  Receipt Date: 20071026
  Transmission Date: 20080405
  Serious: Yes (Death)
  Sender: FDA-Public Use
  Company Number: JP-MERCK-0710USA03070

PATIENT
  Age: 62 Year
  Sex: Male

DRUGS (2)
  1. PRIMAXIN [Suspect]
     Indication: ANTIBIOTIC PROPHYLAXIS
     Route: 041
     Dates: start: 20060424, end: 20060502
  2. LANSOPRAZOLE [Suspect]
     Route: 065
     Dates: start: 20060503, end: 20060515

REACTIONS (2)
  - GASTROINTESTINAL HAEMORRHAGE [None]
  - TOXIC EPIDERMAL NECROLYSIS [None]
